FAERS Safety Report 19422633 (Version 1)
Quarter: 2021Q2

REPORT INFORMATION
  Report Type: Spontaneous
  Country: US (occurrence: US)
  Receive Date: 20210616
  Receipt Date: 20210616
  Transmission Date: 20210717
  Serious: No
  Sender: FDA-Public Use
  Company Number: None

PATIENT
  Age: 95 Year
  Sex: Male

DRUGS (1)
  1. WARFARIN (WARFARIN NA) [Suspect]
     Active Substance: WARFARIN SODIUM
     Indication: ATRIAL FIBRILLATION
     Dates: start: 20020820

REACTIONS (3)
  - International normalised ratio abnormal [None]
  - Gastric haemorrhage [None]
  - Haemorrhage [None]

NARRATIVE: CASE EVENT DATE: 20210228
